FAERS Safety Report 20184094 (Version 1)
Quarter: 2021Q4

REPORT INFORMATION
  Report Type: Spontaneous
  Country: US (occurrence: US)
  Receive Date: 20211214
  Receipt Date: 20211214
  Transmission Date: 20220303
  Serious: Yes (Other)
  Sender: FDA-Public Use
  Company Number: US-ABBVIE-21K-163-3907669-00

PATIENT
  Sex: Male
  Weight: 79.450 kg

DRUGS (10)
  1. IMBRUVICA [Suspect]
     Active Substance: IBRUTINIB
     Indication: Chronic lymphocytic leukaemia
     Route: 048
     Dates: start: 2016, end: 2019
  2. IMBRUVICA [Suspect]
     Active Substance: IBRUTINIB
     Route: 048
     Dates: start: 2019, end: 2020
  3. IMBRUVICA [Suspect]
     Active Substance: IBRUTINIB
     Route: 048
     Dates: start: 2021
  4. PFIZER-BIONTECH COVID-19 VACCINE [Suspect]
     Active Substance: TOZINAMERAN
     Indication: COVID-19 immunisation
     Dosage: NAME OF MANUFACTURER: PFIZER
     Route: 030
     Dates: start: 20210126, end: 20210126
  5. PFIZER-BIONTECH COVID-19 VACCINE [Suspect]
     Active Substance: TOZINAMERAN
     Dosage: NAME OF MANUFACTURER: PFIZER
     Route: 030
     Dates: start: 20210216, end: 20210216
  6. CLONAZEPAM [Concomitant]
     Active Substance: CLONAZEPAM
     Indication: Product used for unknown indication
  7. BENADRYL [Concomitant]
     Active Substance: DIPHENHYDRAMINE HYDROCHLORIDE
     Indication: Product used for unknown indication
  8. IODINE [Concomitant]
     Active Substance: IODINE
     Indication: Supplementation therapy
  9. ZINC [Concomitant]
     Active Substance: ZINC
     Indication: Supplementation therapy
  10. QUERCETIN [Concomitant]
     Active Substance: QUERCETIN
     Indication: Supplementation therapy

REACTIONS (5)
  - Chronic lymphocytic leukaemia [Not Recovered/Not Resolved]
  - Off label use [Recovered/Resolved]
  - Off label use [Not Recovered/Not Resolved]
  - Renal disorder [Unknown]
  - Lymphocyte count increased [Not Recovered/Not Resolved]

NARRATIVE: CASE EVENT DATE: 20190101
